FAERS Safety Report 7491630-1 (Version None)
Quarter: 2011Q2

REPORT INFORMATION
  Report Type: 
  Country: None (occurrence: None)
  Receive Date: 20110519
  Receipt Date: 20110510
  Transmission Date: 20111010
  Serious: Yes (Hospitalization)
  Sender: FDA-Public Use
  Company Number: JP-JNJFOC-20110206730

PATIENT
  Sex: Female
  Weight: 44 kg

DRUGS (19)
  1. FOLIC ACID [Concomitant]
     Indication: PROPHYLAXIS
     Route: 048
     Dates: start: 20100811, end: 20110216
  2. LANSOPRAZOLE [Concomitant]
     Indication: GASTRITIS PROPHYLAXIS
     Route: 048
     Dates: start: 20100702
  3. KETOTIFEN FUMARATE [Concomitant]
     Indication: CONJUNCTIVITIS ALLERGIC
     Route: 031
     Dates: start: 20101217
  4. GOLIMUMAB [Suspect]
     Indication: RHEUMATOID ARTHRITIS
     Route: 058
     Dates: start: 20081014
  5. SEDIEL [Concomitant]
     Indication: ILL-DEFINED DISORDER
     Route: 048
     Dates: start: 20090527
  6. GOLIMUMAB [Suspect]
     Route: 058
     Dates: start: 20101119
  7. SODIUM RISEDRONATE HYDRATE [Concomitant]
  8. CEFAZOLIN SODIUM [Concomitant]
     Indication: ENTEROCOLITIS
     Route: 048
     Dates: start: 20110203
  9. APHTASOLON [Concomitant]
     Indication: STOMATITIS
     Route: 049
  10. GOLIMUMAB [Suspect]
     Route: 058
     Dates: start: 20110210
  11. CEREKINON [Concomitant]
     Indication: ENTEROCOLITIS
     Route: 048
     Dates: start: 20110203
  12. METHYCOBAL [Concomitant]
     Indication: VERTIGO
     Route: 048
     Dates: start: 20100401
  13. FLUOROMETHOLONE [Concomitant]
  14. MERISLON [Concomitant]
     Indication: ILL-DEFINED DISORDER
     Route: 048
     Dates: start: 20100401
  15. METHOTREXATE [Concomitant]
     Indication: RHEUMATOID ARTHRITIS
     Route: 048
     Dates: start: 20100810, end: 20110215
  16. GASCON [Concomitant]
     Indication: ENTEROCOLITIS
     Dates: start: 20110203
  17. CELECOXIB [Concomitant]
     Indication: RHEUMATOID ARTHRITIS
     Route: 048
     Dates: start: 20101207
  18. KETOPROFEN [Concomitant]
     Indication: SPONDYLOLISTHESIS
     Route: 062
     Dates: start: 20101022
  19. FELBINAC [Concomitant]
     Indication: PERIARTHRITIS
     Dates: start: 20100410

REACTIONS (1)
  - ABSCESS JAW [None]
